FAERS Safety Report 12903718 (Version 1)
Quarter: 2016Q4

REPORT INFORMATION
  Report Type: Spontaneous
  Country: US (occurrence: US)
  Receive Date: 20161102
  Receipt Date: 20161102
  Transmission Date: 20170207
  Serious: Yes (Hospitalization)
  Sender: FDA-Public Use
  Company Number: US-HORIZON-ACT-0252-2016

PATIENT
  Age: 51 Year
  Sex: Female

DRUGS (1)
  1. ACTIMMUNE [Suspect]
     Active Substance: INTERFERON GAMMA-1B
     Indication: CHRONIC GRANULOMATOUS DISEASE
     Dosage: 0.7 ML TIW

REACTIONS (5)
  - Pneumonia [Unknown]
  - Injury [Unknown]
  - Infection [Unknown]
  - Seizure [Unknown]
  - Sinus operation [Unknown]

NARRATIVE: CASE EVENT DATE: 2016
